FAERS Safety Report 9900064 (Version 2)
Quarter: 2014Q3

REPORT INFORMATION
  Report Type: Spontaneous
  Country: US (occurrence: US)
  Receive Date: 20140214
  Receipt Date: 20140819
  Transmission Date: 20150326
  Serious: Yes (Death, Hospitalization, Other)
  Sender: FDA-Public Use
  Company Number: US-009507513-1402USA007384

PATIENT
  Sex: Female

DRUGS (1)
  1. NUVARING [Suspect]
     Active Substance: ETHINYL ESTRADIOL\ETONOGESTREL
     Indication: PRODUCT USED FOR UNKNOWN INDICATION
     Route: 067

REACTIONS (7)
  - Multi-organ failure [Fatal]
  - Acute hepatic failure [Fatal]
  - Pulmonary embolism [Fatal]
  - Shock [Fatal]
  - Panic attack [Unknown]
  - Fatigue [Unknown]
  - Renal failure acute [Fatal]

NARRATIVE: CASE EVENT DATE: 20130303
